FAERS Safety Report 8873726 (Version 1)
Quarter: 2012Q4

REPORT INFORMATION
  Report Type: 
  Country: US (occurrence: US)
  Receive Date: 20121023
  Receipt Date: 20121023
  Transmission Date: 20130627
  Serious: Yes (Other)
  Sender: FDA-Public Use
  Company Number: US-ASTELLAS-2012US001955

PATIENT
  Age: 73 Year
  Sex: Female

DRUGS (5)
  1. LEXISCAN [Suspect]
     Indication: EXERCISE ELECTROCARDIOGRAM
     Dosage: UNK
     Route: 065
     Dates: start: 20120216, end: 20120216
  2. ASPIRIN [Concomitant]
     Indication: PRODUCT USED FOR UNKNOWN INDICATION
     Dosage: 81 mg, UID/QD
     Route: 065
  3. LIPITOR [Concomitant]
     Indication: PRODUCT USED FOR UNKNOWN INDICATION
     Dosage: 10 mg, UID/QD
     Route: 065
  4. LACOSAMIDE [Concomitant]
     Indication: PRODUCT USED FOR UNKNOWN INDICATION
     Dosage: 150 mg, bid
     Route: 065
  5. KEPPRA [Concomitant]
     Indication: PRODUCT USED FOR UNKNOWN INDICATION
     Dosage: 1500 mg, bid

REACTIONS (3)
  - Off label use [Recovered/Resolved]
  - Convulsion [Recovered/Resolved]
  - Hypotension [Recovered/Resolved]
